FAERS Safety Report 7461643-4 (Version None)
Quarter: 2011Q2

REPORT INFORMATION
  Report Type: 
  Country: None (occurrence: None)
  Receive Date: 20110428
  Receipt Date: 20110414
  Transmission Date: 20111010
  Serious: Yes (Disabling, Other)
  Sender: FDA-Public Use
  Company Number: 2011AP000740

PATIENT
  Age: 56 Year
  Sex: Male

DRUGS (13)
  1. AMLODIPINE [Concomitant]
  2. BETAHISTINE DIHYDROCHLORIDE (BETAHISTINE HYDROCHLORIDE) [Concomitant]
  3. RAMIPRIL [Concomitant]
  4. NITRAZEPAM [Concomitant]
  5. TIOTROPIUM BROMIDE (TIOTROPIUM BROMIDE) [Concomitant]
  6. PRAVASTATIN SODIUM [Suspect]
     Indication: BLOOD CHOLESTEROL INCREASED
     Dosage: 20 MG, PO
     Route: 048
     Dates: start: 20060119, end: 20110321
  7. TADALAFIL [Concomitant]
  8. ALBUTEROL SULFATE [Concomitant]
  9. CHLORAL HYDRATE (CHLORAL HYDRATE) [Concomitant]
  10. AMOXICILLIN [Concomitant]
  11. FLUOXETINE HCL [Concomitant]
  12. OMEPRAZOLE MAGNESIUM (OMEPRAZOLE MAGNESIUM) [Concomitant]
  13. INFLUENZA VIRUS (INFLUENZA VACCINE) [Concomitant]

REACTIONS (11)
  - HEADACHE [None]
  - MYALGIA [None]
  - NAUSEA [None]
  - VERTIGO [None]
  - ARTHRALGIA [None]
  - RECTAL HAEMORRHAGE [None]
  - DIZZINESS [None]
  - SYNCOPE [None]
  - FALL [None]
  - MALAISE [None]
  - COUGH [None]
